FAERS Safety Report 25253686 (Version 2)
Quarter: 2025Q3

REPORT INFORMATION
  Report Type: Spontaneous
  Country: JP (occurrence: JP)
  Receive Date: 20250430
  Receipt Date: 20250810
  Transmission Date: 20251020
  Serious: Yes (Other)
  Sender: ALEXION PHARMACEUTICALS
  Company Number: JP-ASTRAZENECA-240144588_013120_P_1

PATIENT
  Age: 7 Decade
  Sex: Male

DRUGS (1)
  1. DURVALUMAB [Suspect]
     Active Substance: DURVALUMAB
     Indication: Non-small cell lung cancer

REACTIONS (1)
  - Spinal cord paralysis [Not Recovered/Not Resolved]

NARRATIVE: CASE EVENT DATE: 20240101
